FAERS Safety Report 6091869-6 (Version None)
Quarter: 2009Q1

REPORT INFORMATION
  Report Type: 
  Country: None (occurrence: None)
  Receive Date: 20090225
  Receipt Date: 20080902
  Transmission Date: 20090719
  Serious: No
  Sender: FDA-Public Use
  Company Number: A0745385A

PATIENT
  Age: 51 Year
  Sex: Female

DRUGS (2)
  1. VALTREX [Suspect]
     Indication: GENITAL HERPES
     Dosage: 500MG SINGLE DOSE
     Route: 048
     Dates: start: 20080828
  2. AMITRIPTYLINE [Concomitant]

REACTIONS (2)
  - DEPRESSION [None]
  - HEADACHE [None]
